FAERS Safety Report 10575585 (Version 1)
Quarter: 2014Q4

REPORT INFORMATION
  Report Type: Spontaneous
  Country: US (occurrence: None)
  Receive Date: 20141110
  Receipt Date: 20141110
  Transmission Date: 20150529
  Serious: Yes (Hospitalization)
  Sender: FDA-Public Use
  Company Number: None

PATIENT
  Age: 47 Year
  Sex: Male
  Weight: 69 kg

DRUGS (2)
  1. IPILIMUMAB [Suspect]
     Active Substance: IPILIMUMAB
     Dosage: 10MG/KG, IV Q3 WEEKS X 4 ?THERAPY DATE?09/12/14, 10/03/14, 10/2
     Route: 042
     Dates: start: 20140912
  2. RADIATION THERAPY [Suspect]
     Active Substance: RADIATION THERAPY
     Dosage: 300 CGY
     Dates: start: 20140910

REACTIONS (4)
  - Confusional state [None]
  - Headache [None]
  - Seizure [None]
  - Fatigue [None]

NARRATIVE: CASE EVENT DATE: 20141105
